FAERS Safety Report 6821788-6 (Version None)
Quarter: 2010Q3

REPORT INFORMATION
  Report Type: 
  Country: None (occurrence: None)
  Receive Date: 20100707
  Receipt Date: 20090901
  Transmission Date: 20110219
  Serious: No
  Sender: FDA-Public Use
  Company Number: US-AMGEN-KDL363020

PATIENT
  Sex: Male
  Weight: 69.5 kg

DRUGS (10)
  1. PROCRIT [Suspect]
     Indication: ANAEMIA
     Route: 058
  2. CATAPRES [Concomitant]
  3. LOPRESSOR [Concomitant]
     Route: 048
  4. PRILOSEC [Concomitant]
     Route: 048
  5. HYDRALAZINE HCL [Concomitant]
  6. VICODIN [Concomitant]
  7. ZOCOR [Concomitant]
     Route: 048
  8. SODIUM BICARBONATE [Concomitant]
     Route: 048
  9. POTASSIUM CHLORIDE [Concomitant]
     Route: 048
  10. LASIX [Concomitant]
     Route: 048

REACTIONS (2)
  - ANAEMIA [None]
  - WEIGHT DECREASED [None]
